FAERS Safety Report 6674136-9 (Version None)
Quarter: 2010Q2

REPORT INFORMATION
  Report Type: 
  Country: None (occurrence: None)
  Receive Date: 20100409
  Receipt Date: 20100406
  Transmission Date: 20101027
  Serious: Yes (Hospitalization)
  Sender: FDA-Public Use
  Company Number: DE-BRISTOL-MYERS SQUIBB COMPANY-15050719

PATIENT
  Age: 58 Year
  Sex: Male
  Weight: 76 kg

DRUGS (3)
  1. CETUXIMAB [Suspect]
     Indication: METASTATIC GASTRIC CANCER
     Dosage: RECENT INF:26MAR2010
     Route: 042
     Dates: start: 20091216
  2. CISPLATIN [Suspect]
     Indication: METASTATIC GASTRIC CANCER
     Dosage: O9C10LA+O9C17LA RECENT INF:26MAR2010
     Route: 042
     Dates: start: 20091216
  3. DOCETAXEL [Suspect]
     Indication: METASTATIC GASTRIC CANCER
     Dosage: D9C869+D9A817 RECENT INF:26MAR2010
     Route: 042
     Dates: start: 20091216

REACTIONS (1)
  - DEEP VEIN THROMBOSIS [None]
